FAERS Safety Report 7718204-9 (Version None)
Quarter: 2011Q3

REPORT INFORMATION
  Report Type: 
  Country: None (occurrence: None)
  Receive Date: 20110830
  Receipt Date: 20110818
  Transmission Date: 20111222
  Serious: Yes (Other)
  Sender: FDA-Public Use
  Company Number: PHEH2011US02008

PATIENT
  Sex: Male

DRUGS (1)
  1. TASIGNA [Suspect]
     Indication: MASTOCYTOSIS
     Dosage: 400 MG, BID
     Route: 048
     Dates: start: 20110721

REACTIONS (4)
  - FATIGUE [None]
  - ASTHENIA [None]
  - MUSCULOSKELETAL DISCOMFORT [None]
  - RENAL PAIN [None]
